FAERS Safety Report 10855554 (Version 1)
Quarter: 2015Q1

REPORT INFORMATION
  Report Type: Spontaneous
  Country: US (occurrence: None)
  Receive Date: 20150218
  Receipt Date: 20150218
  Transmission Date: 20150721
  Serious: Yes (Hospitalization, Disabling, Other)
  Sender: FDA-Public Use
  Company Number: None

PATIENT
  Age: 36 Year
  Sex: Male
  Weight: 81.65 kg

DRUGS (6)
  1. AVELOX [Suspect]
     Active Substance: MOXIFLOXACIN HYDROCHLORIDE
     Indication: SINUSITIS
     Route: 048
     Dates: start: 20090223
  2. MULTIVITAMIN [Concomitant]
     Active Substance: VITAMINS
  3. MAGNESIUM [Concomitant]
     Active Substance: MAGNESIUM
  4. VITAMIN C [Concomitant]
     Active Substance: ASCORBIC ACID
  5. VITAMIN B [Concomitant]
     Active Substance: VITAMIN B
  6. ENZYME [Concomitant]

REACTIONS (11)
  - Atrial fibrillation [None]
  - Back pain [None]
  - Neuromyopathy [None]
  - Fatigue [None]
  - Rash [None]
  - Diplopia [None]
  - Temperature intolerance [None]
  - Tremor [None]
  - Malaise [None]
  - Arthralgia [None]
  - Gastrointestinal disorder [None]

NARRATIVE: CASE EVENT DATE: 20051223
